FAERS Safety Report 11415169 (Version 1)
Quarter: 2015Q3

REPORT INFORMATION
  Report Type: Spontaneous
  Country: US (occurrence: None)
  Receive Date: 20150824
  Receipt Date: 20150824
  Transmission Date: 20151125
  Serious: Yes (Other)
  Sender: FDA-Public Use
  Company Number: None

PATIENT
  Age: 58 Year
  Sex: Female
  Weight: 48.99 kg

DRUGS (2)
  1. LEVOTHYROXINE GENERIC [Suspect]
     Active Substance: LEVOTHYROXINE
     Route: 048
  2. 1 A DAY VITAMIN [Concomitant]
     Active Substance: VITAMINS

REACTIONS (4)
  - Goitre [None]
  - Weight increased [None]
  - Heart rate decreased [None]
  - Product measured potency issue [None]

NARRATIVE: CASE EVENT DATE: 20150823
